FAERS Safety Report 9009585 (Version 1)
Quarter: 2013Q1

REPORT INFORMATION
  Report Type: Spontaneous
  Country: US (occurrence: US)
  Receive Date: 20130110
  Receipt Date: 20130110
  Transmission Date: 20140127
  Serious: Yes (Other)
  Sender: FDA-Public Use
  Company Number: US-FRI-1000041445

PATIENT
  Age: 65 Year
  Sex: Female

DRUGS (2)
  1. ARMOUR THYROID [Suspect]
     Indication: AUTOIMMUNE THYROIDITIS
     Dosage: 120 MCG
     Route: 048
     Dates: start: 20121208
  2. SYNTHROID [Suspect]
     Route: 048
     Dates: end: 20121230

REACTIONS (3)
  - Heart rate increased [Recovered/Resolved]
  - Palpitations [Not Recovered/Not Resolved]
  - Dry mouth [Not Recovered/Not Resolved]
